FAERS Safety Report 6575075-4 (Version None)
Quarter: 2010Q1

REPORT INFORMATION
  Report Type: 
  Country: None (occurrence: None)
  Receive Date: 20100202
  Receipt Date: 20100118
  Transmission Date: 20100710
  Serious: Yes (Death)
  Sender: FDA-Public Use
  Company Number: 2010S1000079

PATIENT
  Age: 48 Year
  Sex: Male

DRUGS (3)
  1. DARVOCET-N 100 [Suspect]
     Dosage: PO
     Route: 048
     Dates: end: 20080101
  2. METHADONE [Suspect]
     Dosage: PO
     Route: 048
     Dates: end: 20080101
  3. OXYCODONE AND ACETAMINOPHEN [Suspect]
     Dosage: PO
     Route: 048
     Dates: end: 20080101

REACTIONS (2)
  - CARDIAC ARREST [None]
  - RESPIRATORY ARREST [None]
